FAERS Safety Report 5029271-8 (Version None)
Quarter: 2006Q2

REPORT INFORMATION
  Report Type: 
  Country: None (occurrence: None)
  Receive Date: 20060616
  Receipt Date: 20060616
  Transmission Date: 20061013
  Serious: Yes (Hospitalization)
  Sender: FDA-Public Use
  Company Number: None

PATIENT
  Sex: Male
  Weight: 41.1 kg

DRUGS (2)
  1. REGULAR INSULIN [Suspect]
     Indication: BLOOD GLUCOSE INCREASED
     Dosage: SLIDING SCALE PRN IV
     Route: 042
     Dates: start: 20060519, end: 20060525
  2. MOXIFLOXICIN [Suspect]
     Indication: LUNG INFECTION
     Dosage: 400 MG DAILY PO
     Route: 048
     Dates: start: 20060519, end: 20060525

REACTIONS (6)
  - BLOOD GLUCOSE INCREASED [None]
  - CHRONIC OBSTRUCTIVE PULMONARY DISEASE [None]
  - HAEMATURIA [None]
  - HYPOGLYCAEMIA [None]
  - RESPIRATORY FAILURE [None]
  - THERAPEUTIC RESPONSE DECREASED [None]
